FAERS Safety Report 9297045 (Version 1)
Quarter: 2013Q2

REPORT INFORMATION
  Report Type: Spontaneous
  Country: US (occurrence: US)
  Receive Date: 20130519
  Receipt Date: 20130519
  Transmission Date: 20140414
  Serious: No
  Sender: FDA-Public Use
  Company Number: US-ALLERGAN-1305750US

PATIENT
  Age: 11 Year
  Sex: Male

DRUGS (1)
  1. LASTACAFT [Suspect]
     Indication: EYE PRURITUS
     Dosage: 2 GTT, UNK
     Route: 047
     Dates: start: 20130401, end: 20130418

REACTIONS (7)
  - Pain of skin [Unknown]
  - Erythema [Unknown]
  - Pain of skin [Unknown]
  - Periorbital oedema [Unknown]
  - Eye irritation [Unknown]
  - Instillation site pain [Unknown]
  - Ocular hyperaemia [Unknown]
